FAERS Safety Report 5171087-6 (Version None)
Quarter: 2006Q4

REPORT INFORMATION
  Report Type: 
  Country: None (occurrence: None)
  Receive Date: 20061213
  Receipt Date: 20061122
  Transmission Date: 20070319
  Serious: Yes (Other)
  Sender: FDA-Public Use
  Company Number: NL-GLAXOSMITHKLINE-B0448097A

PATIENT
  Age: 59 Year
  Sex: Male
  Weight: 62 kg

DRUGS (7)
  1. ZYBAN [Suspect]
     Dosage: 150MG UNKNOWN
     Dates: start: 20061120
  2. LERDIP [Concomitant]
     Dosage: 10MG UNKNOWN
     Route: 065
     Dates: start: 20060530
  3. SELOKEEN ZOC [Concomitant]
     Dosage: 50MG PER DAY
     Route: 065
     Dates: start: 20040224
  4. ZESTORETIC [Concomitant]
     Route: 065
     Dates: start: 20021220
  5. LEVEMIR [Concomitant]
     Route: 065
     Dates: start: 20060221
  6. ACTRAPID [Concomitant]
     Route: 065
     Dates: start: 19991201
  7. SELEKTINE [Concomitant]
     Dosage: 40MG UNKNOWN
     Route: 065
     Dates: start: 20021220

REACTIONS (2)
  - DIABETES MELLITUS INADEQUATE CONTROL [None]
  - HYPOGLYCAEMIA [None]
